FAERS Safety Report 9548431 (Version 2)
Quarter: 2014Q1

REPORT INFORMATION
  Report Type: Spontaneous
  Country: US (occurrence: None)
  Receive Date: 20130627
  Receipt Date: 20140328
  Transmission Date: 20141002
  Serious: No
  Sender: FDA-Public Use
  Company Number: 1000044749

PATIENT
  Age: 45 Year
  Sex: Female

DRUGS (5)
  1. LINZESS (LINACLOTIDE) (290 MICROGRAM, CAPSULES) [Suspect]
     Indication: IRRITABLE BOWEL SYNDROME
     Route: 048
     Dates: start: 20130423, end: 2013
  2. LINZESS (LINACLOTIDE) (290 MICROGRAM, CAPSULES) [Suspect]
     Indication: IRRITABLE BOWEL SYNDROME
     Route: 048
     Dates: start: 20130512
  3. METHADONE (METHADONE) (METHADONE) [Concomitant]
  4. KLONOPIN [Concomitant]
  5. XANAX (ALPRAZOLAM) [Concomitant]

REACTIONS (5)
  - Constipation [None]
  - Abdominal pain upper [None]
  - Headache [None]
  - Flatulence [None]
  - Insomnia [None]
